FAERS Safety Report 8848346 (Version 3)
Quarter: 2014Q4

REPORT INFORMATION
  Report Type: Spontaneous
  Country: JP (occurrence: JP)
  Receive Date: 20121018
  Receipt Date: 20141128
  Transmission Date: 20150529
  Serious: Yes (Death, Hospitalization, Other)
  Sender: FDA-Public Use
  Company Number: PHHY2012JP092536

PATIENT
  Age: 88 Year
  Sex: Male

DRUGS (3)
  1. GLIVEC [Suspect]
     Active Substance: IMATINIB MESYLATE
     Indication: CHRONIC MYELOID LEUKAEMIA
     Dosage: 800 MG,QD
     Route: 065
  2. GLIVEC [Suspect]
     Active Substance: IMATINIB MESYLATE
     Indication: BLAST CRISIS IN MYELOGENOUS LEUKAEMIA
     Dosage: 600 MG, QD
     Route: 065
  3. HYDREA [Concomitant]
     Active Substance: HYDROXYUREA
     Indication: PRODUCT USED FOR UNKNOWN INDICATION
     Dosage: 1000 MG, DAILY
     Route: 042

REACTIONS (15)
  - Cerebral infarction [Fatal]
  - Malignant neoplasm progression [Unknown]
  - Decreased appetite [Unknown]
  - Anaemia [Unknown]
  - Generalised oedema [Recovering/Resolving]
  - Chronic myeloid leukaemia [Unknown]
  - Drug resistance [Unknown]
  - Subdural haematoma [Fatal]
  - Depressed level of consciousness [Unknown]
  - White blood cell count increased [Unknown]
  - Thrombocytopenia [Unknown]
  - Blast cell count increased [Unknown]
  - Fatigue [Unknown]
  - Pleural effusion [Recovering/Resolving]
  - Weight increased [Unknown]
